FAERS Safety Report 7328512-1 (Version None)
Quarter: 2011Q1

REPORT INFORMATION
  Report Type: 
  Country: None (occurrence: None)
  Receive Date: 20110303
  Receipt Date: 20110222
  Transmission Date: 20110831
  Serious: Yes (Other)
  Sender: FDA-Public Use
  Company Number: BR-ASTRAZENECA-2011SE10167

PATIENT
  Age: 81 Year
  Sex: Male
  Weight: 40 kg

DRUGS (3)
  1. SEROQUEL [Suspect]
     Indication: NEURODEGENERATIVE DISORDER
     Route: 048
     Dates: start: 20060101, end: 20110221
  2. FRONTAL [Concomitant]
  3. SEROQUEL [Suspect]
     Route: 048

REACTIONS (6)
  - RESTLESSNESS [None]
  - WRONG TECHNIQUE IN DRUG USAGE PROCESS [None]
  - INSOMNIA [None]
  - SPLENOMEGALY [None]
  - DYSPHAGIA [None]
  - DRUG PRESCRIBING ERROR [None]
